FAERS Safety Report 8159138-8 (Version None)
Quarter: 2012Q1

REPORT INFORMATION
  Report Type: 
  Country: None (occurrence: None)
  Receive Date: 20120223
  Receipt Date: 20120217
  Transmission Date: 20120608
  Serious: Yes (Hospitalization)
  Sender: FDA-Public Use
  Company Number: US-INCYTE CORPORATION-2012IN000213

PATIENT
  Sex: Female

DRUGS (11)
  1. CARBIDOPA AND LEVODOPA [Concomitant]
     Dosage: 25/100, QD
  2. PRILOSEC [Concomitant]
     Dosage: 40 MG, QD
  3. PRAMIPEXOLE DIHYCHLLORIDE [Concomitant]
     Dosage: 25 MG, QD, PRN
  4. AMLODIPINE [Concomitant]
     Dosage: 2.5 MG, QD
  5. GABAPENTIN [Concomitant]
     Dosage: 600 MG, QD
  6. XIFAXAN [Concomitant]
     Dosage: 550 MG, BID
  7. ANAGRELIDE HCL [Concomitant]
     Dosage: 5 MG, UNK
  8. JAKAFI [Suspect]
     Indication: MYELOFIBROSIS
     Dosage: 15 MG, BID
     Route: 048
     Dates: start: 20120123, end: 20120203
  9. SPIRONOLACTONE [Concomitant]
     Dosage: 25 MG, QD
  10. PROPRANOLOL [Concomitant]
     Dosage: 160 MG, QD
  11. MIRAPEX ER [Concomitant]
     Dosage: 75 MG, QD

REACTIONS (2)
  - HEPATIC FAILURE [None]
  - AMMONIA INCREASED [None]
